FAERS Safety Report 5793658-6 (Version None)
Quarter: 2008Q2

REPORT INFORMATION
  Report Type: 
  Country: None (occurrence: None)
  Receive Date: 20080627
  Receipt Date: 20080328
  Transmission Date: 20081010
  Serious: Yes (Hospitalization, Other)
  Sender: FDA-Public Use
  Company Number: NL-JNJFOC-20080301543

PATIENT
  Age: 52 Year
  Sex: Female

DRUGS (3)
  1. ACETAMINOPHEN [Suspect]
  2. ACETAMINOPHEN [Suspect]
     Indication: ANALGESIA
  3. FLOXACILLIN SODIUM [Interacting]
     Indication: ARTHRITIS BACTERIAL

REACTIONS (3)
  - DRUG INTERACTION [None]
  - HYDROXYPROLINURIA [None]
  - METABOLIC ACIDOSIS [None]
